FAERS Safety Report 8398145 (Version 4)
Quarter: 2013Q3

REPORT INFORMATION
  Report Type: Report from Study
  Country: US (occurrence: US)
  Receive Date: 20120209
  Receipt Date: 20130718
  Transmission Date: 20140515
  Serious: Yes (Other)
  Sender: FDA-Public Use
  Company Number: US-UCBSA-022081

PATIENT
  Age: 30 Year
  Sex: Female
  Weight: 59.87 kg

DRUGS (19)
  1. CIMZIA [Suspect]
     Indication: CROHN^S DISEASE
     Route: 058
     Dates: start: 20101115, end: 20110404
  2. FLAGYL [Concomitant]
     Indication: CROHN^S DISEASE
     Route: 048
     Dates: start: 201009, end: 201010
  3. FLAGYL [Concomitant]
     Indication: CROHN^S DISEASE
     Dates: start: 20080902, end: 200810
  4. CIPRO [Concomitant]
     Indication: CROHN^S DISEASE
     Route: 048
     Dates: start: 201009, end: 201010
  5. CIPRO [Concomitant]
     Indication: CROHN^S DISEASE
     Dates: start: 20080902, end: 200810
  6. PREDNISONE [Concomitant]
     Indication: CROHN^S DISEASE
     Route: 048
     Dates: start: 20111005, end: 201203
  7. PREDNISONE [Concomitant]
     Indication: CROHN^S DISEASE
     Route: 048
     Dates: start: 20101109, end: 20101114
  8. PREDNISONE [Concomitant]
     Indication: CROHN^S DISEASE
     Route: 048
     Dates: start: 20060519, end: 200812
  9. MESALAMINE [Concomitant]
     Indication: CROHN^S DISEASE
     Dates: start: 20100519, end: 201009
  10. MESALAMINE [Concomitant]
     Indication: CROHN^S DISEASE
     Dates: start: 20060519, end: 200810
  11. ACETAMINOPHEN [Concomitant]
     Indication: CROHN^S DISEASE
  12. VANCOMYCIN [Concomitant]
     Route: 048
     Dates: start: 20101005, end: 20101015
  13. PRENATAL VITAMINS [Concomitant]
     Indication: VITAMIN SUPPLEMENTATION
     Route: 048
     Dates: start: 201009
  14. ALINIA [Concomitant]
     Route: 048
     Dates: start: 20101005, end: 20101015
  15. PREVACID [Concomitant]
     Dates: start: 20101005
  16. FLORASTOR [Concomitant]
     Dates: start: 20101005
  17. REMICADE [Concomitant]
     Dosage: UNKNOWN DOSE
  18. REMICADE [Concomitant]
     Dates: start: 20100107, end: 20100107
  19. REMICADE [Concomitant]
     Dates: start: 2006, end: 20091014

REACTIONS (3)
  - Caesarean section [Unknown]
  - Exposure during pregnancy [Unknown]
  - Breast feeding [Recovered/Resolved]
